FAERS Safety Report 9146824 (Version 2)
Quarter: 2013Q1

REPORT INFORMATION
  Report Type: Spontaneous
  Country: RU (occurrence: RU)
  Receive Date: 20130307
  Receipt Date: 20130322
  Transmission Date: 20140127
  Serious: Yes (Other)
  Sender: FDA-Public Use
  Company Number: RU-JNJFOC-20130216389

PATIENT
  Sex: 0

DRUGS (2)
  1. INFLIXIMAB, RECOMBINANT [Suspect]
     Indication: COLITIS ULCERATIVE
     Dosage: 0-2-6 AND MAINTENANCE THERAPY AFTER 8??WEEKS FOR 12 MONTHS.
     Route: 042
  2. INFLIXIMAB, RECOMBINANT [Suspect]
     Indication: CROHN^S DISEASE
     Dosage: 0-2-6 AND MAINTENANCE THERAPY AFTER 8??WEEKS FOR 12 MONTHS.
     Route: 042

REACTIONS (5)
  - Tuberculosis [Unknown]
  - Latent tuberculosis [Unknown]
  - Pneumonia [Unknown]
  - Inflammatory bowel disease [Unknown]
  - Infection [Unknown]
